FAERS Safety Report 7668567-8 (Version None)
Quarter: 2011Q3

REPORT INFORMATION
  Report Type: 
  Country: None (occurrence: None)
  Receive Date: 20110808
  Receipt Date: 20110725
  Transmission Date: 20111222
  Serious: Yes (Hospitalization, Other)
  Sender: FDA-Public Use
  Company Number: BR-MEDIMMUNE-MEDI-0013265

PATIENT
  Sex: Female
  Weight: 5 kg

DRUGS (6)
  1. SYNAGIS [Suspect]
  2. SYNAGIS [Suspect]
     Indication: BRONCHOPULMONARY DYSPLASIA
  3. DOMPERIDONE MALEATE [Concomitant]
  4. AFRIN MOISTURIZING SALINE [Concomitant]
  5. OMEPRAZOLE [Concomitant]
  6. COMBINED FORMULA [Concomitant]

REACTIONS (4)
  - PNEUMONIA [None]
  - BRONCHOSPASM [None]
  - BRONCHIOLITIS [None]
  - RESPIRATORY ARREST [None]
